FAERS Safety Report 11372823 (Version 1)
Quarter: 2015Q3

REPORT INFORMATION
  Report Type: Spontaneous
  Country: US (occurrence: US)
  Receive Date: 20150811
  Receipt Date: 20150811
  Transmission Date: 20151125
  Serious: No
  Sender: FDA-Public Use
  Company Number: US-ELI_LILLY_AND_COMPANY-US201212002508

PATIENT
  Sex: Male
  Weight: 132 kg

DRUGS (5)
  1. VITAMIN D2 [Concomitant]
     Active Substance: ERGOCALCIFEROL
  2. AXIRON [Suspect]
     Active Substance: TESTOSTERONE
     Indication: BLOOD TESTOSTERONE DECREASED
     Dosage: 30 MG, QD
     Route: 061
     Dates: start: 20121105, end: 20121205
  3. ALLOPURINOL. [Concomitant]
     Active Substance: ALLOPURINOL
     Dosage: 300MG, UNK
  4. COLCHICINE. [Concomitant]
     Active Substance: COLCHICINE
  5. HYDROCODONE W/IBUPROFEN [Concomitant]
     Active Substance: HYDROCODONE\HYDROCODONE BITARTRATE\IBUPROFEN

REACTIONS (2)
  - Administration site rash [Recovered/Resolved]
  - Local swelling [Recovered/Resolved]
